FAERS Safety Report 9802724 (Version 2)
Quarter: 2014Q1

REPORT INFORMATION
  Report Type: Spontaneous
  Country: US (occurrence: US)
  Receive Date: 20140108
  Receipt Date: 20140212
  Transmission Date: 20141002
  Serious: No
  Sender: FDA-Public Use
  Company Number: US-009507513-1312USA005430

PATIENT
  Sex: Female

DRUGS (1)
  1. NEXPLANON [Suspect]
     Indication: CONTRACEPTION
     Dosage: 68 MG/ ONE ROD EVERY THREE YEARS
     Route: 059

REACTIONS (2)
  - Implant site pruritus [Recovered/Resolved]
  - Device kink [Recovered/Resolved]
